FAERS Safety Report 4355732-0 (Version None)
Quarter: 2004Q2

REPORT INFORMATION
  Report Type: 
  Country: None (occurrence: None)
  Receive Date: 20040505
  Receipt Date: 20040430
  Transmission Date: 20050107
  Serious: Yes (Death)
  Sender: FDA-Public Use
  Company Number: KII-2003-0009271

PATIENT
  Age: 80 Year
  Sex: Female

DRUGS (1)
  1. OXYCONTIN [Suspect]
     Indication: CANCER PAIN
     Dosage: SEE IMAGE

REACTIONS (2)
  - BREAST CANCER METASTATIC [None]
  - CONDITION AGGRAVATED [None]
